FAERS Safety Report 4654893-3 (Version None)
Quarter: 2005Q2

REPORT INFORMATION
  Report Type: 
  Country: None (occurrence: None)
  Receive Date: 20050506
  Receipt Date: 20050103
  Transmission Date: 20051028
  Serious: No
  Sender: FDA-Public Use
  Company Number: US-GLAXOSMITHKLINE-A0539078A

PATIENT
  Sex: Male

DRUGS (4)
  1. AMOXIL [Suspect]
     Dosage: 500MG THREE TIMES PER DAY
     Route: 048
  2. DIGOXIN [Concomitant]
  3. CRESTOR [Concomitant]
  4. DIURETIC [Concomitant]

REACTIONS (1)
  - AGITATION [None]
